FAERS Safety Report 23540281 (Version 2)
Quarter: 2024Q1

REPORT INFORMATION
  Report Type: Spontaneous
  Country: ZA (occurrence: None)
  Receive Date: 20240219
  Receipt Date: 20240306
  Transmission Date: 20240410
  Serious: Yes (Death)
  Sender: FDA-Public Use
  Company Number: 2024A039241

PATIENT

DRUGS (1)
  1. TAGRISSO [Suspect]
     Active Substance: OSIMERTINIB
     Indication: Non-small cell lung cancer
     Route: 048
     Dates: start: 202312, end: 202402

REACTIONS (2)
  - Respiratory disorder [Fatal]
  - Malignant neoplasm progression [Fatal]
